FAERS Safety Report 8184107-1 (Version None)
Quarter: 2012Q1

REPORT INFORMATION
  Report Type: 
  Country: None (occurrence: None)
  Receive Date: 20120305
  Receipt Date: 20120123
  Transmission Date: 20120608
  Serious: Yes (Hospitalization, Other)
  Sender: FDA-Public Use
  Company Number: US-ROCHE-1006927

PATIENT
  Sex: Male
  Weight: 71.732 kg

DRUGS (1)
  1. ACCUTANE [Suspect]
     Indication: ACNE
     Dates: start: 20000701, end: 20010101

REACTIONS (9)
  - EPISTAXIS [None]
  - COLITIS [None]
  - CHAPPED LIPS [None]
  - ANXIETY [None]
  - MENTAL DISORDER [None]
  - DEPRESSION [None]
  - IRRITABLE BOWEL SYNDROME [None]
  - CROHN'S DISEASE [None]
  - INFLAMMATORY BOWEL DISEASE [None]
